FAERS Safety Report 9788291 (Version 3)
Quarter: 2014Q1

REPORT INFORMATION
  Report Type: Spontaneous
  Country: CA (occurrence: CA)
  Receive Date: 20131230
  Receipt Date: 20140205
  Transmission Date: 20141002
  Serious: Yes (Death)
  Sender: FDA-Public Use
  Company Number: CA-AMGEN-CANSP2012016557

PATIENT
  Age: 28 Year
  Sex: Female

DRUGS (1)
  1. SENSIPAR [Suspect]
     Indication: ECTOPIC PARATHYROID HORMONE PRODUCTION
     Dosage: 30 MG, BID
     Route: 065

REACTIONS (4)
  - Hypercalcaemia [Fatal]
  - Drug intolerance [Unknown]
  - Nausea [Unknown]
  - Vomiting [Unknown]
